FAERS Safety Report 4485232-9 (Version None)
Quarter: 2004Q4

REPORT INFORMATION
  Report Type: 
  Country: None (occurrence: None)
  Receive Date: 20041026
  Receipt Date: 20040728
  Transmission Date: 20050328
  Serious: No
  Sender: FDA-Public Use
  Company Number: US-BRISTOL-MYERS SQUIBB COMPANY-12653655

PATIENT
  Age: 84 Year
  Sex: Female
  Weight: 84 kg

DRUGS (8)
  1. GLUCOPHAGE XR [Suspect]
     Indication: DIABETES MELLITUS MANAGEMENT
     Route: 048
  2. AMARYL [Concomitant]
  3. IMDUR [Concomitant]
  4. LEVOTHYROID [Concomitant]
  5. NORVASC [Concomitant]
  6. ZOLOFT [Concomitant]
  7. TOPROL-XL [Concomitant]
  8. ELAVIL [Concomitant]

REACTIONS (1)
  - GASTRIC ULCER [None]
